FAERS Safety Report 22361503 (Version 2)
Quarter: 2024Q3

REPORT INFORMATION
  Report Type: Report from Study
  Country: IT (occurrence: IT)
  Receive Date: 20230524
  Receipt Date: 20240902
  Transmission Date: 20241017
  Serious: Yes (Other)
  Sender: UCB
  Company Number: IT-UCBSA-2023026098

PATIENT
  Age: 29 Year
  Sex: Male

DRUGS (29)
  1. LEVETIRACETAM [Suspect]
     Active Substance: LEVETIRACETAM
     Indication: Epilepsy
     Dosage: UNK
  2. LEVETIRACETAM [Suspect]
     Active Substance: LEVETIRACETAM
     Indication: Lennox-Gastaut syndrome
  3. LEVETIRACETAM [Suspect]
     Active Substance: LEVETIRACETAM
     Indication: Off label use
  4. LACOSAMIDE [Suspect]
     Active Substance: LACOSAMIDE
     Indication: Epilepsy
     Dosage: UNK
  5. LACOSAMIDE [Suspect]
     Active Substance: LACOSAMIDE
     Indication: Lennox-Gastaut syndrome
  6. LACOSAMIDE [Suspect]
     Active Substance: LACOSAMIDE
     Indication: Off label use
  7. CLOBAZAM [Suspect]
     Active Substance: CLOBAZAM
     Indication: Epilepsy
     Dosage: UNK
  8. CLOBAZAM [Suspect]
     Active Substance: CLOBAZAM
     Indication: Lennox-Gastaut syndrome
  9. CARBAMAZEPINE [Interacting]
     Active Substance: CARBAMAZEPINE
     Indication: Epilepsy
     Dosage: 1400 MILLIGRAM, PER DAY
  10. CARBAMAZEPINE [Interacting]
     Active Substance: CARBAMAZEPINE
     Indication: Lennox-Gastaut syndrome
  11. VIGABATRIN [Suspect]
     Active Substance: VIGABATRIN
     Indication: Epilepsy
     Dosage: UNK
  12. VIGABATRIN [Suspect]
     Active Substance: VIGABATRIN
     Indication: Lennox-Gastaut syndrome
  13. LAMOTRIGINE [Suspect]
     Active Substance: LAMOTRIGINE
     Indication: Epilepsy
     Dosage: UNK
  14. LAMOTRIGINE [Suspect]
     Active Substance: LAMOTRIGINE
     Indication: Lennox-Gastaut syndrome
  15. NITRAZEPAM [Suspect]
     Active Substance: NITRAZEPAM
     Indication: Epilepsy
     Dosage: UNK
  16. NITRAZEPAM [Suspect]
     Active Substance: NITRAZEPAM
     Indication: Lennox-Gastaut syndrome
  17. OXCARBAZEPINE [Suspect]
     Active Substance: OXCARBAZEPINE
     Indication: Epilepsy
     Dosage: UNK
  18. OXCARBAZEPINE [Suspect]
     Active Substance: OXCARBAZEPINE
     Indication: Lennox-Gastaut syndrome
  19. PHENOBARBITAL [Suspect]
     Active Substance: PHENOBARBITAL
     Indication: Epilepsy
     Dosage: UNK
  20. PHENOBARBITAL [Suspect]
     Active Substance: PHENOBARBITAL
     Indication: Lennox-Gastaut syndrome
  21. RUFINAMIDE [Suspect]
     Active Substance: RUFINAMIDE
     Indication: Epilepsy
     Dosage: UNK
  22. RUFINAMIDE [Suspect]
     Active Substance: RUFINAMIDE
     Indication: Lennox-Gastaut syndrome
  23. TOPIRAMATE [Suspect]
     Active Substance: TOPIRAMATE
     Indication: Epilepsy
     Dosage: UNK
  24. TOPIRAMATE [Suspect]
     Active Substance: TOPIRAMATE
     Indication: Lennox-Gastaut syndrome
  25. VALPROATE [Suspect]
     Active Substance: VALPROIC ACID
     Indication: Epilepsy
     Dosage: UNK
  26. VALPROATE [Suspect]
     Active Substance: VALPROIC ACID
     Indication: Lennox-Gastaut syndrome
  27. ZONISAMIDE [Suspect]
     Active Substance: ZONISAMIDE
     Indication: Epilepsy
     Dosage: UNK
  28. ZONISAMIDE [Suspect]
     Active Substance: ZONISAMIDE
     Indication: Lennox-Gastaut syndrome
  29. CENOBAMATE [Interacting]
     Active Substance: CENOBAMATE
     Indication: Lennox-Gastaut syndrome
     Dosage: 12.5 MILLIGRAM PER DAY

REACTIONS (7)
  - Seizure [Unknown]
  - Vomiting [Recovered/Resolved]
  - Ataxia [Recovered/Resolved]
  - Dizziness [Recovered/Resolved]
  - Drug interaction [Unknown]
  - Multiple-drug resistance [Unknown]
  - Off label use [Unknown]
